FAERS Safety Report 4707473-5 (Version None)
Quarter: 2005Q3

REPORT INFORMATION
  Report Type: 
  Country: None (occurrence: None)
  Receive Date: 20050706
  Receipt Date: 20041203
  Transmission Date: 20060218
  Serious: Yes (Other)
  Sender: FDA-Public Use
  Company Number: GB-GLAXOSMITHKLINE-B0359699A

PATIENT
  Age: 45 Year
  Sex: Male

DRUGS (3)
  1. SEROXAT [Suspect]
     Indication: DEPRESSION
     Route: 065
     Dates: start: 19970201, end: 20010627
  2. PROPRANOLOL [Concomitant]
  3. DIAZEPAM [Concomitant]

REACTIONS (10)
  - AGGRESSION [None]
  - DIZZINESS POSTURAL [None]
  - FEAR [None]
  - HEARING IMPAIRED [None]
  - INTENTIONAL MISUSE [None]
  - INTENTIONAL SELF-INJURY [None]
  - IRRITABILITY [None]
  - OVERDOSE [None]
  - SUICIDE ATTEMPT [None]
  - VISUAL ACUITY REDUCED [None]
